FAERS Safety Report 7791998-2 (Version None)
Quarter: 2011Q4

REPORT INFORMATION
  Report Type: 
  Country: None (occurrence: None)
  Receive Date: 20111003
  Receipt Date: 20110929
  Transmission Date: 20120403
  Serious: Yes (Other)
  Sender: FDA-Public Use
  Company Number: US-SHIRE-ALL1-2011-03659

PATIENT
  Age: 26 Year
  Sex: Female

DRUGS (3)
  1. XANAX [Concomitant]
     Indication: DEPRESSION
     Dosage: UNK, UNKNOWN
     Route: 048
  2. BIRTH CONTROL PILL [Concomitant]
     Indication: CONTRACEPTION
     Dosage: UNK, UNKNOWN
     Route: 048
  3. ADDERALL XR 10 [Suspect]
     Indication: PRODUCT USED FOR UNKNOWN INDICATION
     Dosage: 20 MG, 1X/DAY:QD
     Route: 048
     Dates: start: 20110101, end: 20110901

REACTIONS (1)
  - CARDIAC MURMUR [None]
